FAERS Safety Report 7268589-5 (Version None)
Quarter: 2011Q1

REPORT INFORMATION
  Report Type: 
  Country: None (occurrence: None)
  Receive Date: 20110201
  Receipt Date: 20101220
  Transmission Date: 20110831
  Serious: Yes (Hospitalization, Other)
  Sender: FDA-Public Use
  Company Number: US-BAYER-201024863NA

PATIENT
  Sex: Female
  Weight: 95 kg

DRUGS (4)
  1. YAZ [Suspect]
     Indication: ACNE
     Dosage: SAMPLES ONLY
     Route: 048
     Dates: start: 20070101, end: 20080615
  2. EXCEDRIN (MIGRAINE) [Concomitant]
     Indication: MIGRAINE
     Route: 048
  3. YAZ [Suspect]
     Indication: PREMENSTRUAL SYNDROME
     Dosage: UNK UNK, QD
     Route: 048
     Dates: start: 20080101, end: 20080721
  4. YASMIN [Suspect]
     Indication: PRODUCT USED FOR UNKNOWN INDICATION
     Route: 048
     Dates: start: 20080101

REACTIONS (9)
  - BACK PAIN [None]
  - DYSPNOEA [None]
  - OEDEMA PERIPHERAL [None]
  - MUSCLE SPASMS [None]
  - SKIN DISCOLOURATION [None]
  - PRESYNCOPE [None]
  - DEEP VEIN THROMBOSIS [None]
  - PAIN IN EXTREMITY [None]
  - PLEURITIC PAIN [None]
